FAERS Safety Report 8318725-4 (Version None)
Quarter: 2012Q2

REPORT INFORMATION
  Report Type: 
  Country: None (occurrence: None)
  Receive Date: 20120427
  Receipt Date: 20120417
  Transmission Date: 20120825
  Serious: Yes (Hospitalization)
  Sender: FDA-Public Use
  Company Number: US-JNJFOC-20120305330

PATIENT
  Sex: Male
  Weight: 86.18 kg

DRUGS (14)
  1. REMICADE [Suspect]
     Route: 042
     Dates: start: 20110101, end: 20110101
  2. FOLIC ACID [Concomitant]
     Route: 065
  3. SINGULAIR [Concomitant]
     Indication: RHINITIS ALLERGIC
     Route: 065
  4. REMICADE [Suspect]
     Indication: RHEUMATOID ARTHRITIS
     Route: 042
     Dates: start: 20010101
  5. COREG [Concomitant]
     Route: 065
  6. PREDNISONE [Concomitant]
     Route: 065
  7. AMITRIPTYLINE HCL [Concomitant]
     Route: 065
  8. ASPIRIN [Concomitant]
     Route: 065
  9. PLAVIX [Concomitant]
     Route: 065
  10. LEVOXYL [Concomitant]
     Dosage: 75 (UNITS UNSPECIFIED)
     Route: 065
  11. METHOTREXATE [Suspect]
     Indication: RHEUMATOID ARTHRITIS
     Route: 048
     Dates: start: 20010101
  12. HUMIRA [Suspect]
     Indication: RHEUMATOID ARTHRITIS
     Route: 058
  13. UNKNOWN MEDICATION [Suspect]
     Indication: RHEUMATOID ARTHRITIS
     Route: 065
  14. BENICAR [Concomitant]
     Indication: HYPERTENSION
     Route: 065

REACTIONS (7)
  - ROTATOR CUFF REPAIR [None]
  - PAIN [None]
  - RHEUMATOID ARTHRITIS [None]
  - ABDOMINAL DISCOMFORT [None]
  - STENT PLACEMENT [None]
  - JOINT SWELLING [None]
  - DRUG INEFFECTIVE [None]
